FAERS Safety Report 8171386-X (Version None)
Quarter: 2012Q1

REPORT INFORMATION
  Report Type: 
  Country: None (occurrence: None)
  Receive Date: 20120104
  Receipt Date: 20111201
  Transmission Date: 20120608
  Serious: No
  Sender: FDA-Public Use
  Company Number: 2011HGS-002897

PATIENT
  Age: 58 Year
  Sex: Female
  Weight: 62.1428 kg

DRUGS (6)
  1. WELLBUTRIN(BUPROPION HYDROCHLORIDE)(BUPROPION HYDROCHLORIDE) [Concomitant]
  2. LYRICA [Concomitant]
  3. SYSTEMIC LUPUS ERYTHEMATOSUS   71142A  2011HGS-002560  PLAQUENIL (HYDR [Concomitant]
  4. BENLYSTA [Suspect]
     Indication: SYSTEMIC LUPUS ERYTHEMATOSUS
     Dosage: 2 IN 1 D, INTRAVENOUS DRIP
     Route: 041
     Dates: start: 20111117
  5. REGULAR ASPIRIN(ACETYLSALICYLIC ACID)(ACETYLSALICYLIC ACID) [Concomitant]
  6. NORTRIPTYLINE HCL [Concomitant]

REACTIONS (1)
  - DRUG INEFFECTIVE [None]
